FAERS Safety Report 18611613 (Version 2)
Quarter: 2020Q4

REPORT INFORMATION
  Report Type: Spontaneous
  Country: GB (occurrence: GB)
  Receive Date: 20201214
  Receipt Date: 20201217
  Transmission Date: 20210114
  Serious: Yes (Death, Life-Threatening, Hospitalization, Other)
  Sender: FDA-Public Use
  Company Number: GB-MYLANLABS-2020M1101022

PATIENT
  Age: 74 Year
  Sex: Male

DRUGS (1)
  1. ADALIMUMAB [Suspect]
     Active Substance: ADALIMUMAB
     Indication: ARTHRITIS
     Dosage: UNK
     Route: 065

REACTIONS (12)
  - Myositis [Unknown]
  - Malaise [Recovering/Resolving]
  - Death [Fatal]
  - Pneumonia aspiration [Unknown]
  - Blood creatine phosphokinase increased [Not Recovered/Not Resolved]
  - Pericardial effusion [Recovering/Resolving]
  - Oedema peripheral [Recovering/Resolving]
  - Immune-mediated myositis [Unknown]
  - General physical health deterioration [Unknown]
  - Bundle branch block left [Recovering/Resolving]
  - Respiratory failure [Recovering/Resolving]
  - Acute myocardial infarction [Recovering/Resolving]
